FAERS Safety Report 10236227 (Version 1)
Quarter: 2014Q2

REPORT INFORMATION
  Report Type: Spontaneous
  Country: IT (occurrence: IT)
  Receive Date: 20140613
  Receipt Date: 20140613
  Transmission Date: 20141212
  Serious: Yes (Other)
  Sender: FDA-Public Use
  Company Number: IT-ACTAVIS-2014-12308

PATIENT
  Age: 3 Year
  Sex: Female

DRUGS (2)
  1. ACYCLOVIR (UNKNOWN) [Suspect]
     Indication: VARICELLA
     Dosage: 8 G, TOTAL
     Route: 065
     Dates: start: 20140523, end: 20140523
  2. ACYCLOVIR (UNKNOWN) [Suspect]
     Dosage: 4 ML, TID
     Route: 065
     Dates: start: 20140519

REACTIONS (2)
  - Aspartate aminotransferase increased [Recovered/Resolved]
  - Overdose [Recovered/Resolved]
